FAERS Safety Report 5237101-4 (Version None)
Quarter: 2007Q1

REPORT INFORMATION
  Report Type: 
  Country: None (occurrence: None)
  Receive Date: 20061208
  Receipt Date: 20050418
  Transmission Date: 20070707
  Serious: Yes (Other)
  Sender: FDA-Public Use
  Company Number: 2005UW06002

PATIENT
  Age: 47 Year
  Sex: Male
  Weight: 99.79 kg

DRUGS (2)
  1. CRESTOR [Suspect]
     Indication: BLOOD CHOLESTEROL INCREASED
     Dosage: 10 MG QD PO
     Route: 048
  2. CRESTOR [Suspect]
     Indication: BLOOD TRIGLYCERIDES INCREASED
     Dosage: 10 MG QD PO
     Route: 048

REACTIONS (4)
  - CARDIAC FLUTTER [None]
  - ELECTROCARDIOGRAM T WAVE ABNORMAL [None]
  - MUSCULAR WEAKNESS [None]
  - MYALGIA [None]
